FAERS Safety Report 24995528 (Version 2)
Quarter: 2025Q1

REPORT INFORMATION
  Report Type: Spontaneous
  Country: CN (occurrence: CN)
  Receive Date: 20250221
  Receipt Date: 20250304
  Transmission Date: 20250408
  Serious: Yes (Other)
  Sender: BAXTER
  Company Number: CN-BAXTER-2025BAX011416

PATIENT
  Age: 68 Year
  Sex: Female

DRUGS (14)
  1. MANNITOL [Suspect]
     Active Substance: MANNITOL
     Indication: Intraocular pressure increased
     Dosage: 400 ML, ONCE A DAY, INFUSIONS
     Route: 041
     Dates: start: 202306
  2. MANNITOL [Suspect]
     Active Substance: MANNITOL
     Indication: Angle closure glaucoma
  3. MANNITOL [Suspect]
     Active Substance: MANNITOL
     Indication: Glaucoma
  4. ACETAZOLAMIDE [Suspect]
     Active Substance: ACETAZOLAMIDE
     Indication: Angle closure glaucoma
     Route: 048
     Dates: start: 202306
  5. ACETAZOLAMIDE [Suspect]
     Active Substance: ACETAZOLAMIDE
     Indication: Glaucoma
  6. PILOCARPINE [Concomitant]
     Active Substance: PILOCARPINE
     Indication: Angle closure glaucoma
     Dosage: 4X A DAY, ON THE LEFT EYE
     Route: 065
     Dates: start: 202306
  7. PILOCARPINE [Concomitant]
     Active Substance: PILOCARPINE
     Indication: Glaucoma
  8. BRIMONIDINE [Concomitant]
     Active Substance: BRIMONIDINE TARTRATE
     Indication: Angle closure glaucoma
     Dosage: 3X A DAY, ON THE LEFT EYE
     Route: 065
     Dates: start: 202306
  9. BRIMONIDINE [Concomitant]
     Active Substance: BRIMONIDINE TARTRATE
     Indication: Glaucoma
  10. FLUOROMETHOLONE [Concomitant]
     Active Substance: FLUOROMETHOLONE
     Indication: Angle closure glaucoma
     Dosage: 4X A DAY, ON THE LEFT EYE
     Route: 065
     Dates: start: 202306
  11. FLUOROMETHOLONE [Concomitant]
     Active Substance: FLUOROMETHOLONE
     Indication: Glaucoma
  12. CARTEOLOL [Concomitant]
     Active Substance: CARTEOLOL
     Indication: Angle closure glaucoma
     Dosage: BID, ON THE LEFT EYE
     Route: 065
     Dates: start: 202306
  13. CARTEOLOL [Concomitant]
     Active Substance: CARTEOLOL
     Indication: Glaucoma
  14. NIFEDIPINE [Concomitant]
     Active Substance: NIFEDIPINE
     Indication: Blood pressure increased
     Route: 048

REACTIONS (5)
  - Retinopathy [Unknown]
  - Retinal haemorrhage [Recovered/Resolved]
  - Retinal pigmentation [Unknown]
  - Arteriosclerosis [Unknown]
  - Intraocular pressure fluctuation [Unknown]

NARRATIVE: CASE EVENT DATE: 20230601
